FAERS Safety Report 19839283 (Version 1)
Quarter: 2021Q3

REPORT INFORMATION
  Report Type: Spontaneous
  Country: US (occurrence: US)
  Receive Date: 20210916
  Receipt Date: 20210916
  Transmission Date: 20211014
  Serious: Yes (Other)
  Sender: FDA-Public Use
  Company Number: US-ASTRAZENECA-2021A719828

PATIENT
  Age: 21746 Day
  Sex: Female
  Weight: 93 kg

DRUGS (1)
  1. FARXIGA [Suspect]
     Active Substance: DAPAGLIFLOZIN PROPANEDIOL
     Indication: TYPE 2 DIABETES MELLITUS
     Route: 048
     Dates: start: 20210728, end: 20210827

REACTIONS (9)
  - Vulvovaginal discomfort [Recovering/Resolving]
  - Urethritis noninfective [Recovering/Resolving]
  - Fungal infection [Not Recovered/Not Resolved]
  - White blood cells urine positive [Unknown]
  - Blood urine [Unknown]
  - Glucose urine present [Unknown]
  - Kidney infection [Unknown]
  - Vulvovaginal pain [Recovering/Resolving]
  - Urethral pain [Recovering/Resolving]

NARRATIVE: CASE EVENT DATE: 20210827
